FAERS Safety Report 24111861 (Version 4)
Quarter: 2024Q3

REPORT INFORMATION
  Report Type: Report from Study
  Country: US (occurrence: US)
  Receive Date: 20240718
  Receipt Date: 20240823
  Transmission Date: 20241017
  Serious: Yes (Hospitalization, Other)
  Sender: NOVARTIS
  Company Number: US-002147023-NVSC2024US146617

PATIENT
  Sex: Male

DRUGS (1)
  1. VOTRIENT [Suspect]
     Active Substance: PAZOPANIB HYDROCHLORIDE
     Indication: Product used for unknown indication
     Dosage: UNK
     Route: 065

REACTIONS (11)
  - Haemoglobin decreased [Unknown]
  - Hallucination [Unknown]
  - Feeling hot [Unknown]
  - Peripheral coldness [Unknown]
  - Feeling abnormal [Unknown]
  - Dyspnoea [Unknown]
  - Head discomfort [Unknown]
  - Feeling drunk [Unknown]
  - Tremor [Unknown]
  - Urine output decreased [Unknown]
  - Peripheral swelling [Unknown]
